FAERS Safety Report 15948968 (Version 3)
Quarter: 2019Q1

REPORT INFORMATION
  Report Type: Spontaneous
  Country: JP (occurrence: JP)
  Receive Date: 20190212
  Receipt Date: 20190313
  Transmission Date: 20190417
  Serious: Yes (Death, Hospitalization, Disabling, Other)
  Sender: FDA-Public Use
  Company Number: JP-BRISTOL-MYERS SQUIBB COMPANY-BMS-2018-118624

PATIENT
  Age: 61 Year
  Sex: Female
  Weight: 39.3 kg

DRUGS (1)
  1. OPDIVO [Suspect]
     Active Substance: NIVOLUMAB
     Indication: GASTRIC CANCER
     Dosage: 3 MG/KG, QWK
     Route: 041
     Dates: start: 20180926, end: 20181021

REACTIONS (4)
  - Cerebral infarction [Not Recovered/Not Resolved]
  - Trousseau^s syndrome [Recovering/Resolving]
  - Off label use [Unknown]
  - Malignant neoplasm progression [Fatal]

NARRATIVE: CASE EVENT DATE: 20180926
